FAERS Safety Report 23142619 (Version 1)
Quarter: 2023Q4

REPORT INFORMATION
  Report Type: Report from Study
  Country: US (occurrence: US)
  Receive Date: 20231103
  Receipt Date: 20231103
  Transmission Date: 20240109
  Serious: Yes (Hospitalization)
  Sender: FDA-Public Use
  Company Number: US-Accord-387709

PATIENT
  Age: 24 Year
  Sex: Male

DRUGS (1)
  1. CLOZAPINE [Suspect]
     Active Substance: CLOZAPINE
     Indication: Product used for unknown indication
     Dosage: RE-TITRATED DOSE: 400 MG TAKEN AT BEDTIME.
     Route: 048

REACTIONS (3)
  - Neutrophilia [Unknown]
  - Acute psychosis [Unknown]
  - Treatment noncompliance [Unknown]

NARRATIVE: CASE EVENT DATE: 20231007
